FAERS Safety Report 8161461-8 (Version None)
Quarter: 2012Q1

REPORT INFORMATION
  Report Type: 
  Country: None (occurrence: None)
  Receive Date: 20120224
  Receipt Date: 20120212
  Transmission Date: 20120608
  Serious: Yes (Other)
  Sender: FDA-Public Use
  Company Number: PH-UCBSA-051503

PATIENT
  Age: 16 Year
  Sex: Male

DRUGS (4)
  1. LEVETIRACETAM [Suspect]
  2. LEVETIRACETAM [Suspect]
     Indication: DEVELOPMENTAL DELAY
     Route: 048
  3. LEVETIRACETAM [Suspect]
     Indication: EPILEPSY
     Route: 048
  4. LEVETIRACETAM [Suspect]

REACTIONS (2)
  - BRADYCARDIA [None]
  - SOMNOLENCE [None]
